FAERS Safety Report 9297515 (Version 1)
Quarter: 2013Q2

REPORT INFORMATION
  Report Type: Spontaneous
  Country: US (occurrence: None)
  Receive Date: 20130517
  Receipt Date: 20130517
  Transmission Date: 20140414
  Serious: No
  Sender: FDA-Public Use
  Company Number: None

PATIENT
  Age: 88 Year
  Sex: Male
  Weight: 66.4 kg

DRUGS (2)
  1. RITUXIMAB [Suspect]
     Indication: CHRONIC LYMPHOCYTIC LEUKAEMIA
     Dates: start: 20130423, end: 20130423
  2. RITUXIMAB [Suspect]
     Indication: PROSTATE CANCER
     Dates: start: 20130423, end: 20130423

REACTIONS (7)
  - Hyperhidrosis [None]
  - Oxygen saturation decreased [None]
  - Pallor [None]
  - Blood pressure increased [None]
  - Dyspnoea [None]
  - Breath sounds abnormal [None]
  - Anxiety [None]
